FAERS Safety Report 5365460-0 (Version None)
Quarter: 2007Q2

REPORT INFORMATION
  Report Type: 
  Country: None (occurrence: None)
  Receive Date: 20070530
  Receipt Date: 20070206
  Transmission Date: 20071010
  Serious: No
  Sender: FDA-Public Use
  Company Number: 2006PV023774

PATIENT
  Age: 73 Year
  Sex: Male
  Weight: 142.8831 kg

DRUGS (8)
  1. BYETTA [Suspect]
     Indication: DIABETES MELLITUS NON-INSULIN-DEPENDENT
     Dosage: SEE IMAGE
     Route: 058
     Dates: start: 20061201, end: 20070101
  2. BYETTA [Suspect]
     Indication: DIABETES MELLITUS NON-INSULIN-DEPENDENT
     Dosage: SEE IMAGE
     Route: 058
     Dates: start: 20061020
  3. BYETTA [Suspect]
     Indication: DIABETES MELLITUS NON-INSULIN-DEPENDENT
     Dosage: SEE IMAGE
     Route: 058
     Dates: start: 20070101
  4. BYETTA [Suspect]
  5. GLIPIZIDE [Concomitant]
  6. ACTOS [Concomitant]
  7. LASIX [Concomitant]
  8. BLOOD THINNER [Concomitant]

REACTIONS (6)
  - BLOOD GLUCOSE INCREASED [None]
  - DISCOMFORT [None]
  - GAIT DISTURBANCE [None]
  - INJECTION SITE BRUISING [None]
  - JOINT SWELLING [None]
  - OEDEMA PERIPHERAL [None]
